FAERS Safety Report 4429405-X (Version None)
Quarter: 2004Q3

REPORT INFORMATION
  Report Type: 
  Country: None (occurrence: None)
  Receive Date: 20040818
  Receipt Date: 20040818
  Transmission Date: 20050211
  Serious: Yes (Other)
  Sender: FDA-Public Use
  Company Number: None

PATIENT
  Age: 56 Year
  Sex: Male
  Weight: 114.3065 kg

DRUGS (2)
  1. RANITIDINE [Suspect]
     Indication: GASTRITIS
     Dosage: P.O. BID
     Route: 048
     Dates: start: 20040601, end: 20040701
  2. RANITIDINE [Suspect]
     Indication: IDIOPATHIC URTICARIA
     Dosage: P.O. BID
     Route: 048
     Dates: start: 20040601, end: 20040701

REACTIONS (3)
  - DRUG EFFECT DECREASED [None]
  - PHARMACEUTICAL PRODUCT COMPLAINT [None]
  - URTICARIA [None]
